FAERS Safety Report 6130221-1 (Version None)
Quarter: 2009Q1

REPORT INFORMATION
  Report Type: 
  Country: None (occurrence: None)
  Receive Date: 20090324
  Receipt Date: 20090318
  Transmission Date: 20090719
  Serious: Yes (Hospitalization)
  Sender: FDA-Public Use
  Company Number: US-KINGPHARMUSA00001-K200900305

PATIENT
  Age: 69 Year
  Sex: Female

DRUGS (5)
  1. ALTACE [Suspect]
     Dosage: 5 MG, BID
     Route: 048
  2. BELOC ZOK [Suspect]
     Indication: HYPERTENSION
     Dosage: ^95-0-47.5 MG,^ QD
     Route: 048
     Dates: end: 20090101
  3. AMLODIPINE W/VALSARTAN [Suspect]
     Indication: HYPERTENSION
     Dosage: 11 TABLET, QD
     Route: 048
  4. DOXAZOSIN MESYLATE [Suspect]
     Indication: HYPERTENSION
     Dosage: 2 MG, QD
     Route: 048
  5. ACETYLSALICYLIC ACID [Concomitant]
     Indication: PERIPHERAL ARTERIAL OCCLUSIVE DISEASE
     Dosage: 100 MG, UNK
     Route: 048

REACTIONS (3)
  - DRUG INTERACTION [None]
  - SINUS BRADYCARDIA [None]
  - SYNCOPE [None]
